FAERS Safety Report 7141858-5 (Version None)
Quarter: 2010Q4

REPORT INFORMATION
  Report Type: 
  Country: None (occurrence: None)
  Receive Date: 20101207
  Receipt Date: 20101129
  Transmission Date: 20110411
  Serious: Yes (Hospitalization)
  Sender: FDA-Public Use
  Company Number: ES-ROCHE-744808

PATIENT
  Sex: Female

DRUGS (4)
  1. TRASTUZUMAB [Suspect]
     Dosage: FORM: VIALS
     Route: 042
     Dates: start: 20101019
  2. BEVACIZUMAB [Suspect]
     Dosage: DOSE LEVEL: 15 MG/KG, FORM: VIALS
     Route: 042
     Dates: start: 20101019
  3. CARBOPLATIN [Suspect]
     Dosage: DOSE LEVEL: 6 AUC, FORM: VIALS
     Route: 042
     Dates: start: 20101019
  4. DOCETAXEL [Suspect]
     Dosage: DOSE LEVEL: 75 MG/M2, FORM: VIALS
     Route: 042
     Dates: start: 20101019

REACTIONS (2)
  - DENTAL CARIES [None]
  - PERIODONTAL DISEASE [None]
